FAERS Safety Report 8076309-X (Version None)
Quarter: 2012Q1

REPORT INFORMATION
  Report Type: 
  Country: None (occurrence: None)
  Receive Date: 20120127
  Receipt Date: 20120117
  Transmission Date: 20120608
  Serious: Yes (Hospitalization)
  Sender: FDA-Public Use
  Company Number: FR-ROCHE-1016477

PATIENT
  Age: 45 Year
  Sex: Male

DRUGS (5)
  1. XENICAL [Suspect]
     Indication: OBESITY
  2. ALLOPURINOL [Concomitant]
  3. DILTIAZEM HCL [Concomitant]
  4. INDAPAMIDE [Concomitant]
  5. EFFEXOR [Concomitant]

REACTIONS (2)
  - HEPATIC SIDEROSIS [None]
  - INSULIN RESISTANCE [None]
